FAERS Safety Report 10015496 (Version 2)
Quarter: 2014Q2

REPORT INFORMATION
  Report Type: Spontaneous
  Country: FR (occurrence: FR)
  Receive Date: 20140317
  Receipt Date: 20140429
  Transmission Date: 20141212
  Serious: Yes (Hospitalization)
  Sender: FDA-Public Use
  Company Number: PHHY2014FR029747

PATIENT
  Age: 30 Year
  Sex: Male

DRUGS (9)
  1. CARBAMAZEPINE [Suspect]
     Indication: EPILEPSY
     Dates: start: 2010
  2. OLANZAPINE [Interacting]
     Indication: PSYCHOTIC DISORDER
  3. PIPERACILLIN [Concomitant]
     Indication: BRAIN ABSCESS
  4. CYAMEMAZINE [Concomitant]
     Indication: PSYCHOTIC DISORDER
  5. CEFOTAXIME [Concomitant]
     Indication: BRAIN ABSCESS
  6. FOSFOMYCIN [Concomitant]
     Indication: BRAIN ABSCESS
  7. RIFAMPICIN [Concomitant]
     Indication: BRAIN ABSCESS
  8. CEFTRIAXONE [Concomitant]
  9. IOBITRIDOL [Concomitant]

REACTIONS (12)
  - Drug reaction with eosinophilia and systemic symptoms [Recovered/Resolved]
  - Rash maculo-papular [Recovered/Resolved]
  - Pyrexia [Recovered/Resolved]
  - Hepatocellular injury [Recovered/Resolved]
  - Alanine aminotransferase increased [Recovered/Resolved]
  - Leukocytosis [Recovered/Resolved]
  - Gamma-glutamyltransferase increased [Recovered/Resolved]
  - Blood alkaline phosphatase increased [Recovered/Resolved]
  - Lymphadenopathy [Recovered/Resolved]
  - Cholestasis [Recovered/Resolved]
  - Drug hypersensitivity [Unknown]
  - Drug interaction [Unknown]
